FAERS Safety Report 7819992-3 (Version None)
Quarter: 2011Q4

REPORT INFORMATION
  Report Type: 
  Country: None (occurrence: None)
  Receive Date: 20111013
  Receipt Date: 20111003
  Transmission Date: 20120403
  Serious: Yes (Other)
  Sender: FDA-Public Use
  Company Number: 1000024526

PATIENT
  Age: 76 Year
  Sex: Female

DRUGS (3)
  1. AMLODIPINE BESYLATE AND OLMESARTAN MEDOXOMIL [Suspect]
     Indication: HYPERTENSION
     Dosage: 40/10 MG (2 IN 1 D), ORAL; REDUCED DOSE, ORAL
     Route: 048
     Dates: end: 20110810
  2. XALATAN [Concomitant]
  3. NEBIVOLOL HCL [Suspect]
     Indication: HYPERTENSION
     Dosage: ORAL
     Route: 048
     Dates: end: 20110810

REACTIONS (2)
  - HYPOTENSION [None]
  - SYNCOPE [None]
